FAERS Safety Report 5913016-0 (Version None)
Quarter: 2008Q4

REPORT INFORMATION
  Report Type: 
  Country: None (occurrence: None)
  Receive Date: 20081008
  Receipt Date: 20080926
  Transmission Date: 20090506
  Serious: Yes (Other)
  Sender: FDA-Public Use
  Company Number: US-PFIZER INC-2008082236

PATIENT
  Sex: Female
  Weight: 74.8 kg

DRUGS (5)
  1. NEURONTIN [Suspect]
     Indication: NEUROPATHY PERIPHERAL
     Route: 048
     Dates: start: 20040101, end: 20080901
  2. LYRICA [Suspect]
     Indication: NEURALGIA
     Route: 048
     Dates: start: 20080901
  3. LYRICA [Suspect]
     Indication: BURNING SENSATION
  4. ALL OTHER THERAPEUTIC PRODUCTS [Concomitant]
     Indication: EYE INFLAMMATION
  5. PREDNISOLONE [Concomitant]
     Indication: EYE INFLAMMATION
     Route: 031

REACTIONS (7)
  - ABNORMAL SENSATION IN EYE [None]
  - ANTINUCLEAR ANTIBODY INCREASED [None]
  - BURNING SENSATION [None]
  - EYE IRRITATION [None]
  - EYE OEDEMA [None]
  - NEURALGIA [None]
  - SWELLING FACE [None]
